FAERS Safety Report 7865286-X (Version None)
Quarter: 2011Q4

REPORT INFORMATION
  Report Type: 
  Country: None (occurrence: None)
  Receive Date: 20111028
  Receipt Date: 20101116
  Transmission Date: 20120403
  Serious: No
  Sender: FDA-Public Use
  Company Number: US-GLAXOSMITHKLINE-A0892860A

PATIENT
  Age: 86 Year
  Sex: Male

DRUGS (6)
  1. ALEVE [Concomitant]
  2. METOPROLOL TARTRATE [Concomitant]
  3. ADVAIR DISKUS 100/50 [Suspect]
     Indication: DYSPNOEA
     Dosage: 1PUFF TWICE PER DAY
     Route: 055
     Dates: start: 20101108
  4. SYNTHROID [Concomitant]
  5. ASTEPRO [Suspect]
     Indication: UPPER-AIRWAY COUGH SYNDROME
     Dates: start: 20101108
  6. FLOMAX [Concomitant]

REACTIONS (2)
  - DRUG INEFFECTIVE [None]
  - DYSPNOEA [None]
